FAERS Safety Report 6828157-3 (Version None)
Quarter: 2010Q3

REPORT INFORMATION
  Report Type: 
  Country: None (occurrence: None)
  Receive Date: 20100708
  Receipt Date: 20100708
  Transmission Date: 20110219
  Serious: No
  Sender: FDA-Public Use
  Company Number: None

PATIENT
  Sex: Female
  Weight: 66.2252 kg

DRUGS (1)
  1. HUMIRA [Suspect]
     Indication: RHEUMATOID ARTHRITIS
     Dosage: 40MG EVERY 2 WEEKS SQ
     Route: 058
     Dates: start: 20100101, end: 20100707

REACTIONS (9)
  - FUNGAL INFECTION [None]
  - GINGIVAL INFECTION [None]
  - HYPOAESTHESIA [None]
  - ONYCHOMYCOSIS [None]
  - RENAL CYST [None]
  - RENAL MASS [None]
  - SINUSITIS [None]
  - THYROID NEOPLASM [None]
  - URINARY TRACT INFECTION [None]
